FAERS Safety Report 13728908 (Version 3)
Quarter: 2017Q3

REPORT INFORMATION
  Report Type: Report from Study
  Country: DE (occurrence: DE)
  Receive Date: 20170707
  Receipt Date: 20170726
  Transmission Date: 20171127
  Serious: Yes (Hospitalization)
  Sender: FDA-Public Use
  Company Number: DE-ROCHE-1959266

PATIENT
  Age: 56 Year
  Sex: Female
  Weight: 75 kg

DRUGS (8)
  1. FAMPYRA [Concomitant]
     Active Substance: DALFAMPRIDINE
     Dosage: 1-0-1
     Route: 048
  2. PRIMIDON [Concomitant]
     Active Substance: PRIMIDONE
     Indication: TREMOR
     Dosage: 1.5-0-1.5
     Route: 048
  3. CITALOPRAM [Concomitant]
     Active Substance: CITALOPRAM HYDROBROMIDE
     Indication: DEPRESSION
     Dosage: 1-0-0
     Route: 048
  4. DOCITON [Concomitant]
     Active Substance: PROPRANOLOL HYDROCHLORIDE
     Indication: TREMOR
     Dosage: 2-2-2
     Route: 048
  5. MIRTAZAPIN [Concomitant]
     Active Substance: MIRTAZAPINE
     Indication: DEPRESSION
     Dosage: 0-0-0-1
     Route: 048
  6. OCRELIZUMAB. [Suspect]
     Active Substance: OCRELIZUMAB
     Indication: PRIMARY PROGRESSIVE MULTIPLE SCLEROSIS
     Route: 042
     Dates: start: 20170614, end: 20170614
  7. PANTOZOL [Concomitant]
     Active Substance: PANTOPRAZOLE SODIUM
     Dosage: 1-0-0
     Route: 048
  8. RIVOTRIL [Concomitant]
     Active Substance: CLONAZEPAM
     Indication: TREMOR
     Dosage: 0-0-0-1
     Route: 048

REACTIONS (3)
  - Pulmonary embolism [Unknown]
  - Nervous system disorder [Unknown]
  - Urinary tract infection [Recovered/Resolved]

NARRATIVE: CASE EVENT DATE: 20170626
